FAERS Safety Report 16543643 (Version 3)
Quarter: 2019Q3

REPORT INFORMATION
  Report Type: Report from Study
  Country: BE (occurrence: BE)
  Receive Date: 20190709
  Receipt Date: 20190904
  Transmission Date: 20191004
  Serious: Yes (Other)
  Sender: FDA-Public Use
  Company Number: BE-BEH-2019103955

PATIENT
  Sex: Male

DRUGS (1)
  1. HIZENTRA [Suspect]
     Active Substance: HUMAN IMMUNOGLOBULIN G
     Indication: PRODUCT USED FOR UNKNOWN INDICATION
     Dosage: 4 GRAM (20 ML)
     Route: 058
     Dates: end: 201904

REACTIONS (3)
  - Chills [Recovered/Resolved]
  - Feeling cold [Recovered/Resolved]
  - Shock [Recovered/Resolved]
